FAERS Safety Report 5433208-7 (Version None)
Quarter: 2007Q3

REPORT INFORMATION
  Report Type: 
  Country: None (occurrence: None)
  Receive Date: 20070831
  Receipt Date: 20070625
  Transmission Date: 20080115
  Serious: No
  Sender: FDA-Public Use
  Company Number: A0649233A

PATIENT
  Age: 41 Year
  Sex: Female

DRUGS (2)
  1. ALLI [Suspect]
     Route: 065
  2. MUCINEX [Suspect]
     Route: 065

REACTIONS (4)
  - DIARRHOEA [None]
  - MALAISE [None]
  - NONSPECIFIC REACTION [None]
  - VOMITING [None]
